FAERS Safety Report 10802747 (Version 5)
Quarter: 2015Q1

REPORT INFORMATION
  Report Type: Spontaneous
  Country: US (occurrence: US)
  Receive Date: 20150217
  Receipt Date: 20150330
  Transmission Date: 20150721
  Serious: Yes (Hospitalization, Other)
  Sender: FDA-Public Use
  Company Number: US-BAXTER-2015BAX007874

PATIENT
  Sex: Male
  Weight: 151.64 kg

DRUGS (3)
  1. DIANEAL LOW CALCIUM PERITONEAL DIALYSIS SOLUTION WITH DEXTROSE [Suspect]
     Active Substance: CALCIUM CHLORIDE\DEXTROSE\MAGNESIUM CHLORIDE\SODIUM CHLORIDE\SODIUM LACTATE
     Indication: CHRONIC KIDNEY DISEASE
     Route: 033
     Dates: start: 20130328, end: 20130328
  2. DIANEAL LOW CALCIUM PERITONEAL DIALYSIS SOLUTION WITH DEXTROSE [Suspect]
     Active Substance: CALCIUM CHLORIDE\DEXTROSE\MAGNESIUM CHLORIDE\SODIUM CHLORIDE\SODIUM LACTATE
     Indication: CHRONIC KIDNEY DISEASE
     Route: 033
     Dates: start: 20130328, end: 20130328
  3. DIANEAL LOW CALCIUM PERITONEAL DIALYSIS SOLUTION WITH DEXTROSE [Suspect]
     Active Substance: CALCIUM CHLORIDE\DEXTROSE\MAGNESIUM CHLORIDE\SODIUM CHLORIDE\SODIUM LACTATE
     Indication: CHRONIC KIDNEY DISEASE
     Route: 033
     Dates: start: 20130328, end: 20130328

REACTIONS (19)
  - Internal haemorrhage [Not Recovered/Not Resolved]
  - Pericardial effusion [Unknown]
  - Discomfort [Unknown]
  - Gastrooesophageal reflux disease [Recovering/Resolving]
  - Pleural effusion [Not Recovered/Not Resolved]
  - Cardiac failure [Not Recovered/Not Resolved]
  - Ultrafiltration failure [Recovering/Resolving]
  - Cardiac disorder [Not Recovered/Not Resolved]
  - Peritonitis [Recovering/Resolving]
  - Abdominal distension [Not Recovered/Not Resolved]
  - Sleep apnoea syndrome [Not Recovered/Not Resolved]
  - Pulmonary oedema [Unknown]
  - Pericardial haemorrhage [Not Recovered/Not Resolved]
  - Gait disturbance [Not Recovered/Not Resolved]
  - Oedema peripheral [Recovering/Resolving]
  - Pulmonary oedema [Not Recovered/Not Resolved]
  - Abnormal weight gain [Recovering/Resolving]
  - Hernia [Not Recovered/Not Resolved]
  - Wrong drug administered [Unknown]

NARRATIVE: CASE EVENT DATE: 2013
